FAERS Safety Report 7718068-3 (Version None)
Quarter: 2011Q3

REPORT INFORMATION
  Report Type: 
  Country: None (occurrence: None)
  Receive Date: 20110830
  Receipt Date: 20110823
  Transmission Date: 20111222
  Serious: Yes (Hospitalization)
  Sender: FDA-Public Use
  Company Number: GB-JNJFOC-20040501890

PATIENT
  Sex: Female

DRUGS (8)
  1. AMITRIPTYLINE HCL [Concomitant]
  2. ESOMEPRAZOLE SODIUM [Concomitant]
  3. REMICADE [Suspect]
     Indication: RHEUMATOID ARTHRITIS
     Route: 042
     Dates: start: 20030814, end: 20030925
  4. PREDNISOLONE [Concomitant]
  5. AZULFIDINE [Concomitant]
  6. ACETAMINOPHEN AND CODEINE PHOSPHATE [Concomitant]
  7. METHOTREXATE [Concomitant]
  8. VISCOTEARS [Concomitant]

REACTIONS (1)
  - TUBERCULOSIS [None]
